FAERS Safety Report 22221961 (Version 2)
Quarter: 2023Q2

REPORT INFORMATION
  Report Type: Spontaneous
  Country: JP (occurrence: JP)
  Receive Date: 20230418
  Receipt Date: 20230517
  Transmission Date: 20230721
  Serious: Yes (Hospitalization, Other)
  Sender: FDA-Public Use
  Company Number: JP-ALK-ABELLO A/S-2023AA001578

PATIENT

DRUGS (6)
  1. MITICURE [Suspect]
     Active Substance: DERMATOPHAGOIDES FARINAE\DERMATOPHAGOIDES PTERONYSSINUS
     Indication: Rhinitis allergic
     Dosage: 10000 JAU, QD
     Route: 060
     Dates: start: 20230413
  2. MITICURE [Suspect]
     Active Substance: DERMATOPHAGOIDES FARINAE\DERMATOPHAGOIDES PTERONYSSINUS
     Dosage: 10000 JAU, QD
     Route: 060
     Dates: end: 202304
  3. MITICURE [Suspect]
     Active Substance: DERMATOPHAGOIDES FARINAE\DERMATOPHAGOIDES PTERONYSSINUS
     Dosage: 3300 JAU, QD
     Route: 060
     Dates: end: 202304
  4. CRYPTOMERIA JAPONICA POLLEN [Suspect]
     Active Substance: CRYPTOMERIA JAPONICA POLLEN
     Indication: Seasonal allergy
     Dosage: 5000 JAU, QD
     Route: 060
     Dates: end: 202304
  5. CRYPTOMERIA JAPONICA POLLEN [Suspect]
     Active Substance: CRYPTOMERIA JAPONICA POLLEN
     Dosage: 5000 JAU, QD
     Route: 060
     Dates: start: 20230413
  6. CRYPTOMERIA JAPONICA POLLEN [Suspect]
     Active Substance: CRYPTOMERIA JAPONICA POLLEN
     Dosage: 2000 JAU, QD
     Route: 060

REACTIONS (1)
  - Large intestine operation [Recovered/Resolved]
